FAERS Safety Report 10866030 (Version 13)
Quarter: 2016Q3

REPORT INFORMATION
  Report Type: Report from Study
  Country: US (occurrence: US)
  Receive Date: 20150225
  Receipt Date: 20160822
  Transmission Date: 20161109
  Serious: Yes (Hospitalization, Other)
  Sender: FDA-Public Use
  Company Number: PHEH2014US016539

PATIENT
  Age: 28 Year
  Sex: Female
  Weight: 68 kg

DRUGS (13)
  1. GILENYA [Suspect]
     Active Substance: FINGOLIMOD HYDROCHLORIDE
     Dosage: 0.5 MG, QD
     Route: 048
     Dates: start: 20150417
  2. TRANSDERM SCOP [Concomitant]
     Active Substance: SCOPOLAMINE
     Indication: VOMITING IN PREGNANCY
     Dosage: 1.5 MG, EVERY 3 DAYS (1ST TRIMESTER)
     Route: 062
     Dates: start: 20141016
  3. CALCIUM [Concomitant]
     Active Substance: CALCIUM
     Indication: NUTRITIONAL SUPPLEMENTATION
     Dosage: UNK UNK, QD
     Route: 048
     Dates: start: 201504
  4. MAGNESIUM [Concomitant]
     Active Substance: MAGNESIUM
     Indication: PRODUCT USED FOR UNKNOWN INDICATION
     Dosage: 400 MG, QD
     Route: 048
  5. VITAMIN D [Concomitant]
     Active Substance: CHOLECALCIFEROL
     Indication: NUTRITIONAL SUPPLEMENTATION
     Dosage: QD
     Route: 048
     Dates: start: 201504
  6. VITAMIN C [Concomitant]
     Active Substance: ASCORBIC ACID
     Indication: IMMUNE SYSTEM DISORDER
     Dosage: QD
     Route: 048
     Dates: start: 201504
  7. IRON [Concomitant]
     Active Substance: IRON
     Indication: ANAEMIA
     Dosage: UNK UNK, QD
     Route: 048
     Dates: start: 20150404
  8. PROPRANOLOL [Concomitant]
     Active Substance: PROPRANOLOL\PROPRANOLOL HYDROCHLORIDE
     Indication: HEART RATE INCREASED
     Dosage: 10 MG, TID (2ND TRIMESTER)
     Route: 048
     Dates: start: 20141016, end: 20141023
  9. NEXIUM CONTROL [Concomitant]
     Active Substance: ESOMEPRAZOLE MAGNESIUM
     Indication: PRODUCT USED FOR UNKNOWN INDICATION
     Dosage: 20 MG, QD
     Route: 048
  10. MULTI VITAMIN [Concomitant]
     Active Substance: VITAMINS
     Indication: NUTRITIONAL SUPPLEMENTATION
     Route: 048
  11. GILENYA [Suspect]
     Active Substance: FINGOLIMOD HYDROCHLORIDE
     Indication: MULTIPLE SCLEROSIS
     Dosage: 0.5 MG, QD (PERI-LMP AND 1ST TRIMESTER)
     Route: 048
     Dates: start: 20120101, end: 20140812
  12. MULTI VITAMIN [Concomitant]
     Active Substance: VITAMINS
     Indication: PREGNANCY
  13. GABAPENTIN. [Concomitant]
     Active Substance: GABAPENTIN
     Indication: MULTIPLE SCLEROSIS
     Dosage: 300 MG, QD
     Route: 048
     Dates: end: 20140812

REACTIONS (12)
  - Deep vein thrombosis [Not Recovered/Not Resolved]
  - White blood cell count decreased [Unknown]
  - Smear cervix abnormal [Not Recovered/Not Resolved]
  - Normal newborn [Unknown]
  - Hyperthyroidism [Recovered/Resolved]
  - Haemorrhage [Recovered/Resolved]
  - Maternal exposure during pregnancy [Recovered/Resolved]
  - Dehydration [Recovered/Resolved]
  - Premature delivery [Unknown]
  - Malaise [Recovered/Resolved]
  - Urine potassium abnormal [Recovered/Resolved]
  - Ovarian disorder [Unknown]

NARRATIVE: CASE EVENT DATE: 201407
